FAERS Safety Report 5040972-8 (Version None)
Quarter: 2006Q2

REPORT INFORMATION
  Report Type: 
  Country: None (occurrence: None)
  Receive Date: 20060629
  Receipt Date: 20060629
  Transmission Date: 20061013
  Serious: Yes (Hospitalization)
  Sender: FDA-Public Use
  Company Number: None

PATIENT
  Age: 65 Year
  Sex: Male
  Weight: 77.1115 kg

DRUGS (4)
  1. DETROL LA [Suspect]
     Indication: INCONTINENCE
     Dosage: 1 CAPSULE DAY PO
     Route: 048
     Dates: start: 20050223, end: 20050225
  2. DETROL LA [Suspect]
  3. ASPIRIN [Concomitant]
  4. VITORIN [Concomitant]

REACTIONS (7)
  - BURNING SENSATION [None]
  - CHEILITIS [None]
  - DRUG HYPERSENSITIVITY [None]
  - FEELING ABNORMAL [None]
  - NAIL GROWTH ABNORMAL [None]
  - OEDEMA MOUTH [None]
  - SWELLING FACE [None]
